FAERS Safety Report 8560681-8 (Version None)
Quarter: 2012Q3

REPORT INFORMATION
  Report Type: 
  Country: None (occurrence: None)
  Receive Date: 20120802
  Receipt Date: 20120730
  Transmission Date: 20120928
  Serious: Yes (Life-Threatening, Hospitalization, Other)
  Sender: FDA-Public Use
  Company Number: US-PFIZER INC-2009205355

PATIENT
  Sex: Male
  Weight: 85.261 kg

DRUGS (1)
  1. CHANTIX [Suspect]
     Indication: SMOKING CESSATION THERAPY
     Dosage: 1 MG, UNK
     Route: 048
     Dates: start: 20081020, end: 20081201

REACTIONS (15)
  - ABNORMAL DREAMS [None]
  - PANIC ATTACK [None]
  - NIGHTMARE [None]
  - TACHYPHRENIA [None]
  - ADJUSTMENT DISORDER WITH MIXED ANXIETY AND DEPRESSED MOOD [None]
  - MOOD SWINGS [None]
  - ANGER [None]
  - DYSPNOEA [None]
  - ADVERSE DRUG REACTION [None]
  - MENTAL DISORDER [None]
  - AGGRESSION [None]
  - SUICIDAL IDEATION [None]
  - DEPRESSION [None]
  - ANXIETY [None]
  - INSOMNIA [None]
